FAERS Safety Report 4409639-0 (Version None)
Quarter: 2004Q3

REPORT INFORMATION
  Report Type: 
  Country: None (occurrence: None)
  Receive Date: 20040727
  Receipt Date: 20040727
  Transmission Date: 20050211
  Serious: Yes (Hospitalization)
  Sender: FDA-Public Use
  Company Number: None

PATIENT
  Age: 48 Year
  Sex: Female
  Weight: 82.1011 kg

DRUGS (4)
  1. IBUPROFEN [Suspect]
     Indication: MIGRAINE
     Dosage: 1 TAB X 1 DOSE PO
     Route: 048
     Dates: start: 20040623
  2. ES TYLENOL [Concomitant]
  3. ASPIRIN [Concomitant]
  4. IBU [Concomitant]

REACTIONS (1)
  - ANAPHYLACTIC SHOCK [None]
